FAERS Safety Report 11673811 (Version 1)
Quarter: 2015Q4

REPORT INFORMATION
  Report Type: Spontaneous
  Country: KR (occurrence: KR)
  Receive Date: 20151028
  Receipt Date: 20151028
  Transmission Date: 20160304
  Serious: Yes (Hospitalization)
  Sender: FDA-Public Use
  Company Number: KR-MYLANLABS-2015M1036399

PATIENT

DRUGS (1)
  1. LITHIUM. [Suspect]
     Active Substance: LITHIUM
     Indication: BIPOLAR II DISORDER
     Dosage: 600 MG/DAY
     Route: 065

REACTIONS (7)
  - Toxicity to various agents [Recovering/Resolving]
  - Nervous system disorder [Recovering/Resolving]
  - Amnesia [Recovering/Resolving]
  - Ataxia [Recovering/Resolving]
  - Cerebellar syndrome [Recovering/Resolving]
  - Myoclonus [Recovering/Resolving]
  - Disorientation [Recovering/Resolving]
